FAERS Safety Report 5735821-6 (Version None)
Quarter: 2008Q2

REPORT INFORMATION
  Report Type: 
  Country: None (occurrence: None)
  Receive Date: 20080508
  Receipt Date: 20080508
  Transmission Date: 20081010
  Serious: Yes (Other)
  Sender: FDA-Public Use
  Company Number: None

PATIENT

DRUGS (2)
  1. LANTUS [Suspect]
     Dosage: 5 UNITS HS
  2. REGULAR INSULIN [Suspect]

REACTIONS (1)
  - HYPOGLYCAEMIA [None]
